FAERS Safety Report 21082695 (Version 1)
Quarter: 2022Q3

REPORT INFORMATION
  Report Type: Spontaneous
  Country: US (occurrence: None)
  Receive Date: 20220714
  Receipt Date: 20220714
  Transmission Date: 20221027
  Serious: Yes (unspecified)
  Sender: FDA-Public Use
  Company Number: None

PATIENT
  Age: 89 Year
  Sex: Male

DRUGS (2)
  1. APIXABAN [Suspect]
     Active Substance: APIXABAN
     Indication: Atrial fibrillation
     Dates: start: 20191120
  2. APIXABAN [Suspect]
     Active Substance: APIXABAN
     Indication: Pain

REACTIONS (3)
  - Epistaxis [None]
  - Haemorrhage [None]
  - Melaena [None]

NARRATIVE: CASE EVENT DATE: 20220115
